FAERS Safety Report 5859696-X (Version None)
Quarter: 2008Q3

REPORT INFORMATION
  Report Type: 
  Country: None (occurrence: None)
  Receive Date: 20080827
  Receipt Date: 20080826
  Transmission Date: 20090109
  Serious: Yes (Life-Threatening, Hospitalization)
  Sender: FDA-Public Use
  Company Number: US-EISAI MEDICAL RESEARCH-E2020-03155-SPO-US

PATIENT
  Age: 69 Year
  Sex: Male

DRUGS (9)
  1. ARICEPT [Suspect]
     Indication: AMNESIA
     Route: 048
     Dates: start: 20080624
  2. NEURONTIN [Concomitant]
  3. WELLBUTRIN XL [Concomitant]
  4. ASPIRIN [Concomitant]
  5. PROVIGIL [Concomitant]
  6. K-DUR [Concomitant]
  7. SIMVASTATIN [Concomitant]
  8. PROVIGIL [Concomitant]
     Dosage: 100 MG PRN
  9. CIALIS [Concomitant]
     Dosage: 20 MG PRN

REACTIONS (4)
  - GASTROINTESTINAL HAEMORRHAGE [None]
  - HICCUPS [None]
  - MALLORY-WEISS SYNDROME [None]
  - SUPRAVENTRICULAR TACHYCARDIA [None]
